FAERS Safety Report 5562639-X (Version None)
Quarter: 2007Q4

REPORT INFORMATION
  Report Type: 
  Country: None (occurrence: None)
  Receive Date: 20071217
  Receipt Date: 20071206
  Transmission Date: 20080405
  Serious: Yes (Other)
  Sender: FDA-Public Use
  Company Number: SE-BRISTOL-MYERS SQUIBB COMPANY-13990437

PATIENT
  Age: 65 Year
  Sex: Male

DRUGS (6)
  1. CYCLOPHOSPHAMIDE [Suspect]
     Indication: SYSTEMIC LUPUS ERYTHEMATOSUS
     Route: 048
     Dates: end: 20071001
  2. FOSAMAX [Concomitant]
     Dosage: TABLET FORM
     Route: 048
  3. SYMBICORT [Concomitant]
     Dosage: (BUDESONID/FORMOTEROL FUMARATE-320MCG/9MCG). POWDER FORM
     Route: 055
  4. KALCIPOS-D [Concomitant]
     Dosage: CHEWABLE TABLET
  5. TAVEGYL [Concomitant]
     Dosage: TABLET FORM
  6. DUROFERON TABLETS [Concomitant]

REACTIONS (2)
  - CONVULSION [None]
  - PANCYTOPENIA [None]
